FAERS Safety Report 7911352-X (Version None)
Quarter: 2011Q4

REPORT INFORMATION
  Report Type: 
  Country: None (occurrence: None)
  Receive Date: 20111109
  Receipt Date: 20111026
  Transmission Date: 20120403
  Serious: Yes (Hospitalization)
  Sender: FDA-Public Use
  Company Number: AXC-2011-000468

PATIENT
  Sex: Female

DRUGS (41)
  1. DIGOXIN [Suspect]
     Indication: PRODUCT USED FOR UNKNOWN INDICATION
     Dosage: 125 UG, QD, ORAL
     Route: 048
  2. EZETIMIBE [Concomitant]
  3. SUCRALFATE [Suspect]
     Indication: PRODUCT USED FOR UNKNOWN INDICATION
     Dosage: 1 G, QID, ORAL
     Route: 048
  4. LORAZEPAM [Suspect]
     Indication: SLEEP DISORDER
     Dosage: 0.5-1.5 MG HS PRN, ORAL
     Route: 048
  5. FLUTICASONE PROPIONATE/SALMETEROL [Suspect]
     Indication: PRODUCT USED FOR UNKNOWN INDICATION
     Dosage: 1 PUFF BID, RECTAL
     Route: 054
     Dates: start: 20090513
  6. ACETAMINOPHEN AND HYDROCODONE BITARTRATE [Concomitant]
  7. METOPROLOL SUCCINATE [Concomitant]
  8. DICYCLOMINE HCL [Suspect]
     Indication: PRODUCT USED FOR UNKNOWN INDICATION
     Dosage: 10 MG, QID, ORAL, 10 MG, QID, ORAL
     Route: 048
     Dates: start: 20090501, end: 20090101
  9. DICYCLOMINE HCL [Suspect]
     Indication: PRODUCT USED FOR UNKNOWN INDICATION
     Dosage: 10 MG, QID, ORAL, 10 MG, QID, ORAL
     Route: 048
     Dates: start: 20090701, end: 20090801
  10. ACETAMINOPHEN [Concomitant]
  11. METOLAZONE [Concomitant]
  12. TERIPARATIDE (TERIPARATIDE) [Concomitant]
  13. ATROPINE SULFATE W/DIPHENOXYLATE HYDROCHLOR.(ATROPINE SULFATE, DIPHENO [Suspect]
     Indication: DIARRHOEA
     Dosage: 2.5 MG, Q3H PRN, ORAL
     Route: 048
  14. ACETAMINOPHEN AND HYDROCODONE BITARTRATE [Concomitant]
  15. MULTI-VITAMINS [Concomitant]
  16. ROSUVASTATIN [Concomitant]
  17. TERIPARATIDE (TERIPARATIDE) [Suspect]
  18. VITAMIN D NOS (VITAMIN D NOS) [Concomitant]
  19. CARISOPRODOL [Suspect]
     Indication: PRODUCT USED FOR UNKNOWN INDICATION
     Dosage: 1 TAB Q6H PRN
  20. ESOMEPRAZOLE MAGNESIUM [Concomitant]
  21. METOPROLOL TARTRATE [Concomitant]
  22. PHENOXYBENZAMINE (PHENOXYBENZAMINE) [Concomitant]
  23. OMEPRAZOLE [Concomitant]
  24. FUROSEMIDE [Suspect]
     Indication: PRODUCT USED FOR UNKNOWN INDICATION
  25. METAXALONE [Suspect]
     Indication: PRODUCT USED FOR UNKNOWN INDICATION
     Dosage: 400 MG, QID PRN, ORAL
     Route: 048
  26. PREDNISONE TAB [Suspect]
     Indication: PRODUCT USED FOR UNKNOWN INDICATION
     Dosage: 5 MG, QOD, ORAL
     Route: 048
  27. LEVALBUTEROL HCL [Concomitant]
  28. MEMANTINE HCL [Concomitant]
  29. POTASSIUM CHLORIDE [Suspect]
     Indication: PRODUCT USED FOR UNKNOWN INDICATION
     Dosage: 20 MEQ, QD, ORAL, 20 MEQ, BID, ORAL
     Route: 048
     Dates: start: 20090701
  30. POTASSIUM CHLORIDE [Suspect]
     Indication: PRODUCT USED FOR UNKNOWN INDICATION
     Dosage: 20 MEQ, QD, ORAL, 20 MEQ, BID, ORAL
     Route: 048
     Dates: start: 20090901
  31. CALCIUM + VIT D (CALCIUM, COLECALCIFEROL) [Concomitant]
  32. FENTANYL [Concomitant]
  33. LEVOTHYROXINE SODIUM [Concomitant]
  34. PYSLLIUM [Concomitant]
  35. DIGOXIN [Suspect]
     Indication: PRODUCT USED FOR UNKNOWN INDICATION
     Dosage: 125 UG, QD, ORAL
     Route: 048
  36. AMLODIPINE [Concomitant]
  37. ASPIRIN [Concomitant]
  38. ESOMEPRAZOLE MAGNESIUM [Concomitant]
  39. FENTANYL [Concomitant]
  40. SACCHAROMYCES BOULARDII (SACCHAROMYCES BOULARDII) [Concomitant]
  41. VITAMIN D NOS (VITAMIN D NOS) [Concomitant]

REACTIONS (17)
  - AGITATION [None]
  - DECREASED APPETITE [None]
  - CONSTIPATION [None]
  - CONFUSIONAL STATE [None]
  - DEPRESSION [None]
  - PSEUDODEMENTIA [None]
  - FATIGUE [None]
  - MEMORY IMPAIRMENT [None]
  - URINARY TRACT INFECTION [None]
  - WEIGHT DECREASED [None]
  - DEHYDRATION [None]
  - DELIRIUM [None]
  - DISORIENTATION [None]
  - INSOMNIA [None]
  - VISUAL IMPAIRMENT [None]
  - HALLUCINATION, VISUAL [None]
  - DRUG ADMINISTERED TO PATIENT OF INAPPROPRIATE AGE [None]
